FAERS Safety Report 8796931 (Version 3)
Quarter: 2012Q4

REPORT INFORMATION
  Report Type: 
  Country: US (occurrence: US)
  Receive Date: 20120920
  Receipt Date: 20121204
  Transmission Date: 20130627
  Serious: Yes (Other)
  Sender: FDA-Public Use
  Company Number: PHEH2012US018127

PATIENT
  Sex: Female

DRUGS (1)
  1. GLEEVEC [Suspect]
     Dosage: 400 mg,
     Route: 048

REACTIONS (3)
  - Gastric cancer [Unknown]
  - Abdominal pain upper [Unknown]
  - Tablet physical issue [Unknown]
